FAERS Safety Report 6204208-4 (Version None)
Quarter: 2009Q2

REPORT INFORMATION
  Report Type: 
  Country: None (occurrence: None)
  Receive Date: 20090526
  Receipt Date: 20090526
  Transmission Date: 20091009
  Serious: Yes (Other)
  Sender: FDA-Public Use
  Company Number: None

PATIENT
  Sex: Male
  Weight: 117.9352 kg

DRUGS (2)
  1. TRAMADOL HCL [Suspect]
     Indication: ANALGESIC THERAPY
     Dosage: 50 MG 4 PO
     Route: 048
     Dates: start: 20080915, end: 20090522
  2. TRAMADOL HCL [Suspect]
     Indication: ARTHRALGIA
     Dosage: 50 MG 4 PO
     Route: 048
     Dates: start: 20080915, end: 20090522

REACTIONS (5)
  - DEPRESSION [None]
  - FATIGUE [None]
  - LETHARGY [None]
  - PSYCHOMOTOR HYPERACTIVITY [None]
  - WITHDRAWAL SYNDROME [None]
